FAERS Safety Report 8210653-8 (Version None)
Quarter: 2012Q1

REPORT INFORMATION
  Report Type: 
  Country: None (occurrence: None)
  Receive Date: 20120314
  Receipt Date: 20120305
  Transmission Date: 20120608
  Serious: Yes (Other)
  Sender: FDA-Public Use
  Company Number: US-ASTRAZENECA-2012SE15193

PATIENT
  Age: 51 Year
  Sex: Male

DRUGS (13)
  1. HUMIRA [Suspect]
     Indication: CROHN'S DISEASE
     Dosage: 40 MG/0.8 ML
     Route: 065
     Dates: start: 20060101, end: 20070101
  2. MERCAPTOPURINE [Concomitant]
  3. BETACAROTENE [Concomitant]
     Indication: MEDICAL DIET
  4. FOLIC ACID [Concomitant]
     Indication: MEDICAL DIET
  5. MULTI-VITAMIN [Concomitant]
     Indication: MEDICAL DIET
  6. CALCIUM [Concomitant]
     Indication: MEDICAL DIET
  7. FOSAMAX [Concomitant]
  8. TOCOPHERYL ACETATE [Concomitant]
     Indication: MEDICAL DIET
  9. HUMIRA [Suspect]
     Dosage: 40 MG/0.8 ML
     Route: 065
     Dates: end: 20120101
  10. SELENIUM [Concomitant]
     Indication: MEDICAL DIET
  11. CYANOCOBALAMIN-TANNIN COMPLEX [Concomitant]
     Indication: MEDICAL DIET
  12. SALMO SALAR OIL [Concomitant]
     Indication: MEDICAL DIET
  13. ENTOCORT EC [Suspect]
     Route: 048

REACTIONS (19)
  - OTITIS EXTERNA [None]
  - ERYTHEMA [None]
  - CONDITION AGGRAVATED [None]
  - PSORIASIS [None]
  - ACNE [None]
  - SKIN ATROPHY [None]
  - SKIN HAEMORRHAGE [None]
  - DRUG INEFFECTIVE [None]
  - SKIN FISSURES [None]
  - EXFOLIATIVE RASH [None]
  - HAEMORRHAGE [None]
  - BLISTER [None]
  - RASH ERYTHEMATOUS [None]
  - PURULENT DISCHARGE [None]
  - CROHN'S DISEASE [None]
  - STOMATITIS [None]
  - FEELING HOT [None]
  - DUODENAL STENOSIS [None]
  - SCAB [None]
